FAERS Safety Report 8103700-5 (Version None)
Quarter: 2012Q1

REPORT INFORMATION
  Report Type: 
  Country: None (occurrence: None)
  Receive Date: 20120201
  Receipt Date: 20120124
  Transmission Date: 20120608
  Serious: Yes (Hospitalization)
  Sender: FDA-Public Use
  Company Number: FR-PFIZER INC-2010031495

PATIENT
  Age: 89 Year
  Sex: Female

DRUGS (14)
  1. LASIX [Suspect]
     Dosage: UNK
     Route: 048
     Dates: start: 20100209, end: 20100217
  2. ASPIRIN [Suspect]
     Dosage: UNK
     Route: 048
     Dates: end: 20100217
  3. CELLUVISC [Suspect]
     Dosage: UNK
     Route: 047
  4. ADANCOR [Concomitant]
     Dosage: UNK
     Dates: end: 20100209
  5. ALPRAZOLAM [Suspect]
     Dosage: UNK
     Route: 048
     Dates: end: 20100217
  6. DUPHALAC [Suspect]
     Dosage: UNK
     Route: 048
  7. RAMIPRIL [Suspect]
     Dosage: UNK
     Route: 048
     Dates: start: 20100209, end: 20100217
  8. DILTIAZEM HCL [Suspect]
     Dosage: UNK
     Route: 048
     Dates: start: 20100209, end: 20100217
  9. ACETAMINOPHEN [Suspect]
     Dosage: UNK
     Route: 048
     Dates: end: 20100217
  10. EFFEXOR [Suspect]
     Dosage: UNK
     Route: 048
     Dates: end: 20100217
  11. LANTUS [Suspect]
     Dosage: UNK
     Route: 048
  12. DIAMOX SRC [Concomitant]
     Dosage: UNK
     Dates: end: 20100209
  13. XALATAN [Suspect]
     Dosage: UNK
     Route: 047
  14. PANTOPRAZOLE SODIUM [Suspect]
     Dosage: UNK
     Route: 048
     Dates: end: 20100217

REACTIONS (2)
  - PRURITUS [None]
  - THROMBOCYTOPENIA [None]
